FAERS Safety Report 7592572-3 (Version None)
Quarter: 2011Q3

REPORT INFORMATION
  Report Type: 
  Country: None (occurrence: None)
  Receive Date: 20110706
  Receipt Date: 20110627
  Transmission Date: 20111222
  Serious: Yes (Hospitalization)
  Sender: FDA-Public Use
  Company Number: US-PURDUE-GBR-2011-0008441

PATIENT
  Age: 44 Year
  Sex: Female

DRUGS (5)
  1. MORPHINE SULFATE [Suspect]
     Indication: ABDOMINAL PAIN UPPER
     Dosage: UNK
  2. HYDROCHLOROTHIAZIDE [Concomitant]
     Indication: HYPERTENSION
  3. ANTACIDS [Concomitant]
     Indication: PRODUCT USED FOR UNKNOWN INDICATION
  4. INSULIN [Concomitant]
     Indication: DIABETES MELLITUS
  5. ENOXAPARIN [Concomitant]
     Indication: PRODUCT USED FOR UNKNOWN INDICATION

REACTIONS (1)
  - CARDIOGENIC SHOCK [None]
